FAERS Safety Report 4400091-8 (Version None)
Quarter: 2004Q3

REPORT INFORMATION
  Report Type: 
  Country: None (occurrence: None)
  Receive Date: 20040714
  Receipt Date: 20040705
  Transmission Date: 20050211
  Serious: Yes (Other)
  Sender: FDA-Public Use
  Company Number: 2004222246JP

PATIENT
  Age: 75 Year
  Sex: Male

DRUGS (3)
  1. FARMORUBICIN RTU (EPIRUBICIN HYDROCHLORIDE) SOLUTION, STERILE [Suspect]
     Indication: HEPATIC NEOPLASM MALIGNANT
     Dosage: 10 MG, QD, IV
     Route: 042
     Dates: start: 20040601
  2. SALIGREN (CEVIMELINE HYDROCHLORIDE HYDRATE) [Suspect]
     Dosage: ORAL
     Route: 048
  3. LIPIODOL ULTRA FLUID (ETHIODIZED OIL) [Suspect]
     Dosage: IV
     Route: 042

REACTIONS (2)
  - INTERSTITIAL LUNG DISEASE [None]
  - PLEURAL EFFUSION [None]
